FAERS Safety Report 11109079 (Version 1)
Quarter: 2015Q2

REPORT INFORMATION
  Report Type: Spontaneous
  Country: US (occurrence: None)
  Receive Date: 20150511
  Receipt Date: 20150511
  Transmission Date: 20150821
  Serious: Yes (Disabling)
  Sender: FDA-Public Use
  Company Number: None

PATIENT
  Age: 59 Year
  Sex: Female
  Weight: 44.45 kg

DRUGS (4)
  1. LEVOXYL [Suspect]
     Active Substance: LEVOTHYROXINE SODIUM
     Indication: HYPOTHYROIDISM
     Dosage: 1/2 TABLET?ONCE DAILY?TAKEN BY MOUTH
     Route: 048
  2. LEVOXYL [Concomitant]
     Active Substance: LEVOTHYROXINE SODIUM
  3. LEVOXYL [Suspect]
     Active Substance: LEVOTHYROXINE SODIUM
     Indication: AUTOIMMUNE THYROIDITIS
     Dosage: 1/2 TABLET?ONCE DAILY?TAKEN BY MOUTH
     Route: 048
  4. ZOLPIDEM [Concomitant]
     Active Substance: ZOLPIDEM\ZOLPIDEM TARTRATE

REACTIONS (34)
  - Myalgia [None]
  - Muscle spasms [None]
  - Weight decreased [None]
  - Faeces discoloured [None]
  - Burning sensation [None]
  - Gingival pain [None]
  - Dehydration [None]
  - Alopecia [None]
  - Vitamin D decreased [None]
  - Constipation [None]
  - Product substitution issue [None]
  - Dyspepsia [None]
  - Joint stiffness [None]
  - Anxiety [None]
  - Sputum abnormal [None]
  - Retching [None]
  - Dry mouth [None]
  - Oral discomfort [None]
  - Crying [None]
  - Night sweats [None]
  - Product quality issue [None]
  - Dysphagia [None]
  - Skin burning sensation [None]
  - Oesophageal pain [None]
  - Tongue dry [None]
  - Medication residue present [None]
  - Throat irritation [None]
  - Muscle tightness [None]
  - Pyrexia [None]
  - Pain [None]
  - Drug intolerance [None]
  - Glossodynia [None]
  - Nervousness [None]
  - Abnormal faeces [None]

NARRATIVE: CASE EVENT DATE: 20140830
